FAERS Safety Report 8505551-6 (Version None)
Quarter: 2012Q2

REPORT INFORMATION
  Report Type: 
  Country: None (occurrence: None)
  Receive Date: 20120405
  Receipt Date: 20090923
  Transmission Date: 20120825
  Serious: Yes (Hospitalization, Other)
  Sender: FDA-Public Use
  Company Number: PHEH2009US11667

PATIENT
  Sex: Female

DRUGS (1)
  1. RECLAST [Suspect]
     Indication: OSTEOPOROSIS
     Dosage: 5 MG ONCE ANNUALLY, INFUSION
     Dates: start: 20090916, end: 20090916

REACTIONS (3)
  - ARTHRALGIA [None]
  - PAIN [None]
  - MYALGIA [None]
